FAERS Safety Report 18670209 (Version 1)
Quarter: 2020Q4

REPORT INFORMATION
  Report Type: Spontaneous
  Country: CN (occurrence: CN)
  Receive Date: 20201228
  Receipt Date: 20201228
  Transmission Date: 20210114
  Serious: Yes (Other)
  Sender: FDA-Public Use
  Company Number: CN-PFIZER INC-2020508734

PATIENT
  Age: 52 Year
  Sex: Female
  Weight: 60 kg

DRUGS (3)
  1. CELEBREX [Suspect]
     Active Substance: CELECOXIB
     Indication: OSTEOARTHRITIS
     Dosage: 1 DF, 2X/DAY (ONE CAPSULE EVERY TIME, TWICE A DAY)
     Route: 048
     Dates: start: 20201123, end: 20201123
  2. CELEBREX [Suspect]
     Active Substance: CELECOXIB
     Indication: ANTIINFLAMMATORY THERAPY
  3. CELEBREX [Suspect]
     Active Substance: CELECOXIB
     Indication: ANALGESIC THERAPY

REACTIONS (4)
  - Skin swelling [Unknown]
  - Pruritus [Unknown]
  - Eye haemorrhage [Unknown]
  - Oedema [Unknown]

NARRATIVE: CASE EVENT DATE: 20201123
